FAERS Safety Report 22645798 (Version 5)
Quarter: 2024Q3

REPORT INFORMATION
  Report Type: Spontaneous
  Country: US (occurrence: US)
  Receive Date: 20230627
  Receipt Date: 20240712
  Transmission Date: 20241016
  Serious: Yes (Other)
  Sender: PFIZER
  Company Number: US-PFIZER INC-PV202300112679

PATIENT
  Age: 75 Year
  Sex: Female
  Weight: 50.34 kg

DRUGS (4)
  1. IBRANCE [Suspect]
     Active Substance: PALBOCICLIB
     Dosage: 125 MG, FOR 21 DAYS, 7 DAYS OFF
     Route: 048
  2. IBRANCE [Suspect]
     Active Substance: PALBOCICLIB
     Dosage: 100 MG
  3. VINEGAR APPLE CIDER PLUS [Concomitant]
     Indication: Cardiovascular disorder
     Dosage: UNK
  4. VINEGAR APPLE CIDER PLUS [Concomitant]
     Indication: Body fat disorder

REACTIONS (2)
  - Blindness [Unknown]
  - Red blood cell count decreased [Unknown]
